FAERS Safety Report 21333071 (Version 2)
Quarter: 2022Q4

REPORT INFORMATION
  Report Type: Spontaneous
  Country: US (occurrence: US)
  Receive Date: 20220914
  Receipt Date: 20221013
  Transmission Date: 20230113
  Serious: Yes (Other)
  Sender: FDA-Public Use
  Company Number: US-PFIZER INC-PV202200061190

PATIENT
  Age: 23 Year
  Sex: Male

DRUGS (1)
  1. BENEFIX [Suspect]
     Active Substance: COAGULATION FACTOR IX RECOMBINANT HUMAN\ISOPROPYL ALCOHOL
     Indication: Prophylaxis
     Dosage: 7.250 IU (100IU/KG) +/-10%, AS NEEDED (EVERY 12-24 HOURS)
     Route: 042

REACTIONS (2)
  - Haemorrhage [Unknown]
  - Injury [Unknown]
